FAERS Safety Report 16023704 (Version 2)
Quarter: 2019Q1

REPORT INFORMATION
  Report Type: Report from Study
  Country: US (occurrence: US)
  Receive Date: 20190301
  Receipt Date: 20190305
  Transmission Date: 20190418
  Serious: Yes (Hospitalization)
  Sender: FDA-Public Use
  Company Number: US-TESARO-2019-TSO00964-US

PATIENT
  Age: 73 Year
  Sex: Female

DRUGS (2)
  1. ZEJULA [Suspect]
     Active Substance: NIRAPARIB
     Dosage: 300 MG, DAILY
     Route: 048
     Dates: start: 20190215, end: 20190218
  2. ZEJULA [Suspect]
     Active Substance: NIRAPARIB
     Indication: LUNG NEOPLASM MALIGNANT
     Dosage: 300 MG, QD
     Route: 048
     Dates: start: 20190119, end: 201902

REACTIONS (6)
  - Fatigue [Unknown]
  - Vomiting [Unknown]
  - Product use in unapproved indication [Unknown]
  - Nausea [Unknown]
  - Hospitalisation [Unknown]
  - Drug intolerance [Unknown]

NARRATIVE: CASE EVENT DATE: 20190119
